FAERS Safety Report 5287372-3 (Version None)
Quarter: 2007Q1

REPORT INFORMATION
  Report Type: 
  Country: None (occurrence: None)
  Receive Date: 20070116
  Receipt Date: 20061106
  Transmission Date: 20070707
  Serious: No
  Sender: FDA-Public Use
  Company Number: 2006SP003933

PATIENT
  Age: 40 Year
  Sex: Female
  Weight: 99.7913 kg

DRUGS (3)
  1. LUNESTA [Suspect]
     Indication: INSOMNIA
     Dosage: SEE IMAGE
     Route: 048
     Dates: start: 20060901, end: 20060101
  2. LUNESTA [Suspect]
     Indication: INSOMNIA
     Dosage: SEE IMAGE
     Route: 048
     Dates: start: 20060101, end: 20061001
  3. PREVACID [Concomitant]

REACTIONS (4)
  - INSOMNIA [None]
  - LABYRINTHITIS [None]
  - OEDEMA PERIPHERAL [None]
  - REBOUND EFFECT [None]
